FAERS Safety Report 12578337 (Version 1)
Quarter: 2016Q3

REPORT INFORMATION
  Report Type: Report from Study
  Country: US (occurrence: US)
  Receive Date: 20160721
  Receipt Date: 20160721
  Transmission Date: 20161109
  Serious: Yes (Death, Hospitalization)
  Sender: FDA-Public Use
  Company Number: US-ROCHE-1792665

PATIENT
  Age: 45 Year
  Sex: Female
  Weight: 64 kg

DRUGS (11)
  1. TOPOTECAN [Concomitant]
     Active Substance: TOPOTECAN\TOPOTECAN HYDROCHLORIDE
     Route: 065
     Dates: end: 20160505
  2. PEPCID [Concomitant]
     Active Substance: FAMOTIDINE
     Route: 048
  3. GABAPENTIN. [Concomitant]
     Active Substance: GABAPENTIN
     Dosage: EVERY BEDTIME
     Route: 048
     Dates: start: 20160526
  4. MORPHINE [Concomitant]
     Active Substance: MORPHINE
     Indication: PAIN
     Dosage: 1/2 TAB AS NEEDEDE
     Route: 048
  5. POLYETHYLENE GLYCOL [Concomitant]
     Active Substance: POLYETHYLENE GLYCOLS
     Route: 048
  6. AVASTIN [Suspect]
     Active Substance: BEVACIZUMAB
     Indication: CERVIX CARCINOMA
     Route: 042
  7. MINERAL OIL. [Concomitant]
     Active Substance: MINERAL OIL
     Dosage: BEDTIME
     Route: 048
  8. FENTANYL. [Concomitant]
     Active Substance: FENTANYL
  9. MORPHINE [Concomitant]
     Active Substance: MORPHINE
     Dosage: EXTENDED RELEASE TABLET
     Route: 048
     Dates: end: 20160527
  10. CISPLATIN. [Concomitant]
     Active Substance: CISPLATIN
     Route: 065
     Dates: end: 20160505
  11. DICYCLOMINE [Concomitant]
     Active Substance: DICYCLOMINE HYDROCHLORIDE
     Route: 048

REACTIONS (7)
  - Tachycardia [Unknown]
  - Shock haemorrhagic [Unknown]
  - Hypotension [Unknown]
  - Neoplasm malignant [Fatal]
  - Vaginal haemorrhage [Unknown]
  - Dizziness [Unknown]
  - Abdominal pain [Recovered/Resolved]

NARRATIVE: CASE EVENT DATE: 20160707
